FAERS Safety Report 16819313 (Version 2)
Quarter: 2019Q4

REPORT INFORMATION
  Report Type: Spontaneous
  Country: IT (occurrence: IT)
  Receive Date: 20190917
  Receipt Date: 20191009
  Transmission Date: 20200122
  Serious: Yes (Life-Threatening)
  Sender: FDA-Public Use
  Company Number: IT-MYLANLABS-2019M1087737

PATIENT
  Age: 15 Year
  Sex: Male

DRUGS (4)
  1. DIPRIVAN [Concomitant]
     Active Substance: PROPOFOL
     Dosage: 150 MILLIGRAM
  2. ESMERON [Concomitant]
     Active Substance: ROCURONIUM BROMIDE
     Dosage: 30 MILLIGRAM
  3. VANCOMICINA MYLAN 1 G POLVERE PER SOLUZIONE PER INFUSIONE [Suspect]
     Active Substance: VANCOMYCIN HYDROCHLORIDE
     Indication: ANTIBIOTIC PROPHYLAXIS
     Dosage: 1000 MILLIGRAM, TOTAL
     Route: 042
     Dates: start: 20190830
  4. SEVORANE [Concomitant]
     Active Substance: SEVOFLURANE
     Dosage: UNK

REACTIONS (5)
  - Angioedema [Recovered/Resolved]
  - Tongue oedema [Recovered/Resolved]
  - Vasodilatation [Recovered/Resolved]
  - Hypotension [Recovered/Resolved]
  - Bronchospasm [Recovered/Resolved]

NARRATIVE: CASE EVENT DATE: 20190830
